FAERS Safety Report 4844731-8 (Version None)
Quarter: 2005Q4

REPORT INFORMATION
  Report Type: 
  Country: None (occurrence: None)
  Receive Date: 20051129
  Receipt Date: 20051114
  Transmission Date: 20060501
  Serious: Yes (Hospitalization)
  Sender: FDA-Public Use
  Company Number: 2005-0008931

PATIENT
  Age: 40 Year
  Sex: Male

DRUGS (6)
  1. TRUVADA [Suspect]
     Dosage: 1 DOSAGE FORMS, ORAL
     Route: 048
     Dates: start: 20050829
  2. KALETRA [Suspect]
     Dosage: 2 DOSAGE FORMS, ORAL
     Route: 048
     Dates: start: 20050829
  3. LISINOPRIL [Concomitant]
  4. TRAZODONE HCL [Concomitant]
  5. OLANZAPINE [Concomitant]
  6. FLUOXETINE HCL [Concomitant]

REACTIONS (3)
  - GASTRITIS [None]
  - PANCREATITIS ACUTE [None]
  - URINARY TRACT INFECTION [None]
